FAERS Safety Report 25100254 (Version 5)
Quarter: 2025Q3

REPORT INFORMATION
  Report Type: Spontaneous
  Country: CA (occurrence: CA)
  Receive Date: 20250320
  Receipt Date: 20250908
  Transmission Date: 20251020
  Serious: Yes (Life-Threatening, Other)
  Sender: CELLTRION
  Company Number: CA-PFIZER INC-202500054526

PATIENT

DRUGS (16)
  1. ADALIMUMAB [Suspect]
     Active Substance: ADALIMUMAB
     Indication: Product used for unknown indication
     Route: 058
  2. ADALIMUMAB [Suspect]
     Active Substance: ADALIMUMAB
  3. INFLIXIMAB [Suspect]
     Active Substance: INFLIXIMAB
     Indication: Crohn^s disease
     Dosage: 500 MG 1 EVERY 4 WEEKS
     Route: 042
  4. INFLIXIMAB [Suspect]
     Active Substance: INFLIXIMAB
     Dosage: UNK 1 EVERY 4 WEEKS
     Route: 042
  5. INFLIXIMAB [Suspect]
     Active Substance: INFLIXIMAB
     Indication: Crohn^s disease
     Dosage: 1 EVERY 4 WEEKS
     Route: 042
  6. AMOXICILLIN\CLAVULANIC ACID [Concomitant]
     Active Substance: AMOXICILLIN\CLAVULANIC ACID
  7. AMOXICILLIN\CLAVULANIC ACID [Concomitant]
     Active Substance: AMOXICILLIN\CLAVULANIC ACID
  8. CALCIUM CARBONATE [Concomitant]
     Active Substance: CALCIUM CARBONATE
  9. CHOLECALCIFEROL [Concomitant]
     Active Substance: CHOLECALCIFEROL
  10. CIPROFLOXACIN [Concomitant]
     Active Substance: CIPROFLOXACIN
  11. LANSOPRAZOLE [Concomitant]
     Active Substance: LANSOPRAZOLE
  12. METRONIDAZOLE [Concomitant]
     Active Substance: METRONIDAZOLE
  13. IRON SUCROSE [Concomitant]
     Active Substance: IRON SUCROSE
  14. LANSOPRAZOLE [Concomitant]
     Active Substance: LANSOPRAZOLE
  15. AMOXICILLIN\CLAVULANIC ACID [Concomitant]
     Active Substance: AMOXICILLIN\CLAVULANIC ACID
  16. SACCHARATED IRON OXIDE [Concomitant]
     Active Substance: IRON SUCROSE

REACTIONS (12)
  - Anal fissure [Unknown]
  - Mouth ulceration [Unknown]
  - Petechiae [Unknown]
  - Proctalgia [Unknown]
  - Swelling [Unknown]
  - Arthralgia [Unknown]
  - Lupus-like syndrome [Unknown]
  - Oedema peripheral [Unknown]
  - Pyrexia [Unknown]
  - Myalgia [Unknown]
  - Rash erythematous [Unknown]
  - Off label use [Unknown]
